FAERS Safety Report 13050495 (Version 2)
Quarter: 2016Q4

REPORT INFORMATION
  Report Type: Report from Study
  Country: CN (occurrence: CN)
  Receive Date: 20161221
  Receipt Date: 20161227
  Transmission Date: 20170207
  Serious: Yes (Death)
  Sender: FDA-Public Use
  Company Number: CN-ASTELLAS-2016JP022339

PATIENT
  Age: 82 Year
  Sex: Male
  Weight: 58 kg

DRUGS (3)
  1. ZOLEDRONIC ACID [Concomitant]
     Active Substance: ZOLEDRONIC ACID
     Indication: METASTASES TO BONE
     Route: 042
     Dates: start: 201502, end: 20161214
  2. ROCALTROL [Concomitant]
     Active Substance: CALCITRIOL
     Indication: METASTASES TO BONE
     Dosage: 0.25 MG, ONCE DAILY
     Route: 048
     Dates: start: 201502, end: 20161214
  3. ENZALUTAMIDE [Suspect]
     Active Substance: ENZALUTAMIDE
     Indication: HORMONE-REFRACTORY PROSTATE CANCER
     Route: 048
     Dates: start: 20151021, end: 20161214

REACTIONS (1)
  - Lung infection [Fatal]

NARRATIVE: CASE EVENT DATE: 20161215
